FAERS Safety Report 4907177-X (Version None)
Quarter: 2006Q1

REPORT INFORMATION
  Report Type: 
  Country: None (occurrence: None)
  Receive Date: 20060206
  Receipt Date: 20060131
  Transmission Date: 20060701
  Serious: Yes (Other)
  Sender: FDA-Public Use
  Company Number: HQWYE599731JAN06

PATIENT
  Age: 34 Year
  Sex: Male

DRUGS (1)
  1. PANTPAS (PANTOPRAZOLE, INJECTION) [Suspect]
     Indication: PYLORIC STENOSIS
     Dosage: 40 MG 2X PER 1 DAY INTRAVENOUS
     Route: 042

REACTIONS (12)
  - BLOOD ALBUMIN INCREASED [None]
  - BLOOD BICARBONATE INCREASED [None]
  - BLOOD CHLORIDE DECREASED [None]
  - BLOOD CREATININE INCREASED [None]
  - BLOOD PH INCREASED [None]
  - BLOOD UREA INCREASED [None]
  - OEDEMA PERIPHERAL [None]
  - PCO2 INCREASED [None]
  - PENILE SWELLING [None]
  - PO2 DECREASED [None]
  - PROTEIN TOTAL INCREASED [None]
  - SCROTAL OEDEMA [None]
